FAERS Safety Report 4810460-X (Version None)
Quarter: 2005Q4

REPORT INFORMATION
  Report Type: 
  Country: None (occurrence: None)
  Receive Date: 20051025
  Receipt Date: 20051025
  Transmission Date: 20060501
  Serious: Yes (Hospitalization)
  Sender: FDA-Public Use
  Company Number: None

PATIENT
  Age: 57 Year
  Sex: Male

DRUGS (2)
  1. CARBOPLATIN [Suspect]
     Dosage: 270MG IV ON 7/11, 7/18
     Route: 042
  2. DOCETAXEL [Suspect]
     Dosage: 54MG IV ON 7/11, 7/18
     Route: 042

REACTIONS (5)
  - FATIGUE [None]
  - MUCOSAL INFLAMMATION [None]
  - NEUTROPENIA [None]
  - PYREXIA [None]
  - THROMBOCYTOPENIA [None]
